FAERS Safety Report 8601555 (Version 2)
Quarter: 2012Q4

REPORT INFORMATION
  Report Type: 
  Country: US (occurrence: US)
  Receive Date: 20120606
  Receipt Date: 20121112
  Transmission Date: 20130627
  Serious: Yes (Other)
  Sender: FDA-Public Use
  Company Number: US-PFIZER INC-2012131737

PATIENT
  Age: 83 Year
  Sex: Female
  Weight: 53.52 kg

DRUGS (7)
  1. PREMARIN [Suspect]
     Indication: ESTROGEN LOW
     Dosage: 1.25 mg, Daily
     Dates: start: 1970, end: 2012
  2. ESTRADIOL [Suspect]
     Indication: ESTROGEN LOW
     Dosage: 1 mg, daily
     Dates: start: 201204
  3. NEURONTIN [Concomitant]
     Indication: POLYMYALGIA RHEUMATICA
     Dosage: 100 mg, 2x/day
  4. NEURONTIN [Concomitant]
     Indication: BURNING FOOT
  5. PRILOSEC [Concomitant]
     Indication: HYPERACIDITY
     Dosage: 20 mg, daily
  6. XANAX [Concomitant]
  7. ASA [Concomitant]

REACTIONS (9)
  - Visual impairment [Not Recovered/Not Resolved]
  - Activities of daily living impaired [Not Recovered/Not Resolved]
  - Night sweats [Not Recovered/Not Resolved]
  - Hot flush [Not Recovered/Not Resolved]
  - Drug dispensing error [Unknown]
  - Dizziness [Not Recovered/Not Resolved]
  - Crying [Unknown]
  - Nervous system disorder [Unknown]
  - Asthenia [Unknown]
